FAERS Safety Report 4371686-5 (Version None)
Quarter: 2004Q2

REPORT INFORMATION
  Report Type: 
  Country: None (occurrence: None)
  Receive Date: 20040526
  Receipt Date: 20040511
  Transmission Date: 20050107
  Serious: Yes (Hospitalization)
  Sender: FDA-Public Use
  Company Number: 206431

PATIENT
  Age: 36 Year
  Sex: Female

DRUGS (6)
  1. HERCEPTIN [Suspect]
     Indication: INFLAMMATORY CARCINOMA OF THE BREAST
     Dosage: SEE IMAGE
     Route: 042
     Dates: start: 20040108, end: 20040108
  2. HERCEPTIN [Suspect]
     Indication: INFLAMMATORY CARCINOMA OF THE BREAST
     Dosage: SEE IMAGE
     Route: 042
     Dates: start: 20040115, end: 20040326
  3. TAXOTERE [Concomitant]
  4. ANZEMET [Concomitant]
  5. DECADRON [Concomitant]
  6. BENADRYL [Concomitant]

REACTIONS (3)
  - ARTHRALGIA [None]
  - BLOOD URIC ACID INCREASED [None]
  - CHONDROCALCINOSIS PYROPHOSPHATE [None]
